FAERS Safety Report 24575203 (Version 1)
Quarter: 2024Q4

REPORT INFORMATION
  Report Type: Spontaneous
  Country: US (occurrence: None)
  Receive Date: 20241030
  Receipt Date: 20241030
  Transmission Date: 20250114
  Serious: No
  Sender: Public
  Company Number: None

PATIENT
  Age: 44 Year
  Sex: Male
  Weight: 126 kg

DRUGS (2)
  1. AMMONIA INHALANTS [Suspect]
     Active Substance: AMMONIA
     Indication: Depressed level of consciousness
     Dates: start: 20241028, end: 20241029
  2. fluoxentine [Concomitant]

REACTIONS (2)
  - Nasal congestion [None]
  - Epistaxis [None]

NARRATIVE: CASE EVENT DATE: 20241029
